FAERS Safety Report 10743697 (Version 1)
Quarter: 2015Q1

REPORT INFORMATION
  Report Type: Spontaneous
  Country: US (occurrence: US)
  Receive Date: 20150128
  Receipt Date: 20150128
  Transmission Date: 20150721
  Serious: No
  Sender: FDA-Public Use
  Company Number: US-009507513-1501USA010429

PATIENT
  Age: 64 Year
  Sex: Male

DRUGS (3)
  1. AVASTIN [Concomitant]
     Active Substance: BEVACIZUMAB
     Dosage: UNK
  2. INTRON A [Suspect]
     Active Substance: INTERFERON ALFA-2B
     Indication: RENAL CANCER
     Dosage: 4 MILLION IU, UNK
     Route: 058
     Dates: start: 20150112
  3. INTRON A [Suspect]
     Active Substance: INTERFERON ALFA-2B
     Dosage: 8 MILLION IU, UNK
     Route: 058
     Dates: start: 201410, end: 20150112

REACTIONS (3)
  - Lethargy [Unknown]
  - Headache [Unknown]
  - Incorrect product storage [Unknown]

NARRATIVE: CASE EVENT DATE: 20150123
